FAERS Safety Report 9521377 (Version 1)
Quarter: 2013Q3

REPORT INFORMATION
  Report Type: Report from Study
  Country: CA (occurrence: CA)
  Receive Date: 20130913
  Receipt Date: 20130913
  Transmission Date: 20140515
  Serious: Yes (Hospitalization)
  Sender: FDA-Public Use
  Company Number: CA-JNJFOC-20130903846

PATIENT
  Sex: Male
  Weight: 116 kg

DRUGS (4)
  1. REMICADE [Suspect]
     Indication: CROHN^S DISEASE
     Dosage: FREQUENCY: ONCE EVERY 5 TO 6 WEEKS
     Route: 042
     Dates: start: 20090115
  2. BENADRYL [Concomitant]
     Indication: PREMEDICATION
     Route: 065
  3. GRAVOL [Concomitant]
     Indication: PREMEDICATION
     Route: 065
  4. TYLENOL [Concomitant]
     Indication: PREMEDICATION
     Route: 065

REACTIONS (1)
  - Insomnia [Recovering/Resolving]
